FAERS Safety Report 8525211-5 (Version None)
Quarter: 2012Q3

REPORT INFORMATION
  Report Type: 
  Country: None (occurrence: None)
  Receive Date: 20120720
  Receipt Date: 20120716
  Transmission Date: 20120928
  Serious: Yes (Hospitalization, Other)
  Sender: FDA-Public Use
  Company Number: PHHY2012BR061406

PATIENT
  Sex: Female

DRUGS (3)
  1. EXELON [Suspect]
     Indication: DEMENTIA ALZHEIMER'S TYPE
     Dosage: 4.6 MG, QD
     Route: 062
     Dates: start: 20100101
  2. EXELON [Suspect]
     Dosage: 13.3 MG, QD
     Route: 062
     Dates: start: 20120701, end: 20120708
  3. EXELON [Suspect]
     Dosage: 9.5 MG, QD
     Route: 062
     Dates: start: 20120101

REACTIONS (7)
  - MOTOR DYSFUNCTION [None]
  - VOMITING [None]
  - HAEMORRHAGIC STROKE [None]
  - THROMBOSIS [None]
  - URINARY TRACT INFECTION [None]
  - COGNITIVE DISORDER [None]
  - DEMENTIA ALZHEIMER'S TYPE [None]
